FAERS Safety Report 7463177-X (Version None)
Quarter: 2011Q2

REPORT INFORMATION
  Report Type: 
  Country: None (occurrence: None)
  Receive Date: 20110506
  Receipt Date: 20110427
  Transmission Date: 20111010
  Serious: Yes (Other)
  Sender: FDA-Public Use
  Company Number: US-ROCHE-747977

PATIENT
  Sex: Female
  Weight: 72.6 kg

DRUGS (4)
  1. VIOXX [Concomitant]
     Dates: start: 20000101
  2. ACCUTANE [Suspect]
     Route: 065
     Dates: start: 20011201, end: 20021201
  3. ACCUTANE [Suspect]
     Indication: ACNE
     Route: 065
     Dates: start: 19990101
  4. ACCUTANE [Suspect]
     Route: 065
     Dates: start: 20030601, end: 20031101

REACTIONS (7)
  - COLITIS [None]
  - ABDOMINAL PAIN [None]
  - CROHN'S DISEASE [None]
  - INTESTINAL HAEMORRHAGE [None]
  - RECTAL HAEMORRHAGE [None]
  - INFLAMMATORY BOWEL DISEASE [None]
  - DEPRESSION [None]
